FAERS Safety Report 8362290 (Version 5)
Quarter: 2013Q2

REPORT INFORMATION
  Report Type: Spontaneous
  Country: US (occurrence: US)
  Receive Date: 20120130
  Receipt Date: 20130516
  Transmission Date: 20140414
  Serious: Yes (Hospitalization, Other)
  Sender: FDA-Public Use
  Company Number: US-B.I. PHARMACEUTICALS,INC./RIDGEFIELD-2012-BP-01563BP

PATIENT
  Age: 82 Year
  Sex: Female
  Weight: 75.75 kg

DRUGS (24)
  1. PRADAXA [Suspect]
     Indication: ATRIAL FIBRILLATION
     Dosage: 150 MG
     Route: 048
     Dates: start: 201108
  2. MICARDIS [Suspect]
     Indication: HYPERTENSION
     Dosage: 80 MG
     Route: 048
     Dates: start: 2008
  3. TEKTURNA [Concomitant]
     Indication: HYPERTENSION
     Dosage: 150 MG
     Route: 048
     Dates: start: 2008
  4. TEKTURNA [Concomitant]
     Dosage: 150 MG
     Dates: start: 20120620
  5. COREG [Concomitant]
     Indication: HYPERTENSION
     Dosage: 25 MG
     Route: 048
     Dates: start: 20110125
  6. SPIRONOLACTONE [Concomitant]
     Indication: HYPERTENSION
     Dosage: 12.5 MG
     Route: 048
     Dates: start: 20110125
  7. HCTZ [Concomitant]
     Indication: HYPERTENSION
     Dosage: 12.5 MG
     Route: 048
     Dates: start: 20110627
  8. ALENDRONATE [Concomitant]
     Indication: OSTEOPOROSIS
     Dosage: 10 MG
     Route: 048
     Dates: start: 20120515
  9. CREON [Concomitant]
     Indication: DIVERTICULUM
     Dosage: 3600 MG
     Route: 048
     Dates: start: 20120816
  10. LORAZEPAM [Concomitant]
     Dates: start: 20120604
  11. PREMARIN [Concomitant]
     Dates: start: 20120531
  12. WELCHOL [Concomitant]
     Dates: start: 20120514
  13. PROBIOTIC [Concomitant]
     Dates: start: 20120514
  14. MAGNESIUM [Concomitant]
     Dates: start: 20120514
  15. LORTAB [Concomitant]
     Dates: start: 20111005
  16. LIBRAX [Concomitant]
     Dates: start: 20110719
  17. TEMAZEPAM [Concomitant]
     Dates: start: 20110309
  18. NASONEX [Concomitant]
     Dates: start: 20110309
  19. MILK OF MAGNESIA [Concomitant]
     Dates: start: 20110309
  20. LCD VANICREAM 2% [Concomitant]
     Dates: start: 20110125
  21. FISH OIL [Concomitant]
     Dosage: 3000 MG
     Dates: start: 20110125
  22. CALCIUM [Concomitant]
     Dosage: 1800 MG
     Dates: start: 20110125
  23. EYE GEL [Concomitant]
     Indication: DRY EYE
     Dates: start: 20110104
  24. MULTIVITAMIN [Concomitant]
     Dates: start: 20091116

REACTIONS (8)
  - Blood pressure increased [Recovered/Resolved]
  - Skin cancer [Not Recovered/Not Resolved]
  - Inguinal hernia [Recovered/Resolved]
  - Blood urine present [Not Recovered/Not Resolved]
  - Inguinal hernia [Not Recovered/Not Resolved]
  - Neck pain [Not Recovered/Not Resolved]
  - Local swelling [Not Recovered/Not Resolved]
  - Musculoskeletal discomfort [Not Recovered/Not Resolved]
